FAERS Safety Report 6369374-9 (Version None)
Quarter: 2009Q3

REPORT INFORMATION
  Report Type: 
  Country: None (occurrence: None)
  Receive Date: 20090917
  Receipt Date: 20090910
  Transmission Date: 20100115
  Serious: Yes (Other)
  Sender: FDA-Public Use
  Company Number: 09-001477

PATIENT
  Sex: Female

DRUGS (1)
  1. ESTRACE [Suspect]
     Dosage: VAGINAL
     Route: 067

REACTIONS (1)
  - CONVULSION [None]
